FAERS Safety Report 24980637 (Version 1)
Quarter: 2025Q1

REPORT INFORMATION
  Report Type: Report from Study
  Country: US (occurrence: US)
  Receive Date: 20250218
  Receipt Date: 20250218
  Transmission Date: 20250408
  Serious: Yes (Hospitalization)
  Sender: TAKEDA
  Company Number: US-TAKEDA-2022TUS047165

PATIENT
  Age: 61 Year
  Sex: Female
  Weight: 113 kg

DRUGS (25)
  1. GLASSIA [Suspect]
     Active Substance: .ALPHA.1-PROTEINASE INHIBITOR HUMAN
     Indication: Alpha-1 antitrypsin deficiency
     Dosage: 60 MILLIGRAM/KILOGRAM, 1/WEEK
     Dates: start: 20110926
  2. GLASSIA [Suspect]
     Active Substance: .ALPHA.1-PROTEINASE INHIBITOR HUMAN
     Indication: Obstructive sleep apnoea syndrome
     Dosage: 60 MILLIGRAM/KILOGRAM, 1/WEEK
     Dates: start: 20111101
  3. HEPARIN [Concomitant]
     Active Substance: HEPARIN SODIUM
  4. DIPHENHYDRAMINE [Concomitant]
     Active Substance: DIPHENHYDRAMINE
  5. TRULICITY [Concomitant]
     Active Substance: DULAGLUTIDE
  6. SODIUM CHLORIDE [Concomitant]
     Active Substance: SODIUM CHLORIDE
  7. EPINEPHRINE [Concomitant]
     Active Substance: EPINEPHRINE
  8. COZAAR [Concomitant]
     Active Substance: LOSARTAN POTASSIUM
  9. AMLODIPINE BESYLATE [Concomitant]
     Active Substance: AMLODIPINE BESYLATE
  10. REMICADE [Concomitant]
     Active Substance: INFLIXIMAB
  11. GLIPIZIDE [Concomitant]
     Active Substance: GLIPIZIDE
  12. ALLOPURINOL [Concomitant]
     Active Substance: ALLOPURINOL
  13. ESTRADIOL [Concomitant]
     Active Substance: ESTRADIOL
  14. ESCITALOPRAM OXALATE [Concomitant]
     Active Substance: ESCITALOPRAM OXALATE
  15. PREDNISONE [Concomitant]
     Active Substance: PREDNISONE
  16. METFORMIN [Concomitant]
     Active Substance: METFORMIN HYDROCHLORIDE
  17. WELLBUTRIN SR [Concomitant]
     Active Substance: BUPROPION HYDROCHLORIDE
  18. Lmx [Concomitant]
  19. ASPIRIN [Concomitant]
     Active Substance: ASPIRIN
  20. HYDROXYZINE HYDROCHLORIDE [Concomitant]
     Active Substance: HYDROXYZINE HYDROCHLORIDE
  21. PAXIL [Concomitant]
     Active Substance: PAROXETINE HYDROCHLORIDE
  22. JARDIANCE [Concomitant]
     Active Substance: EMPAGLIFLOZIN
  23. DEXTROAMPHETAMINE [Concomitant]
     Active Substance: DEXTROAMPHETAMINE
  24. AMPHETAMINE [Concomitant]
     Active Substance: AMPHETAMINE
  25. DIPHENHYDRAMINE HYDROCHLORIDE [Concomitant]
     Active Substance: DIPHENHYDRAMINE HYDROCHLORIDE

REACTIONS (5)
  - Hypertension [Unknown]
  - Chest discomfort [Unknown]
  - Flushing [Unknown]
  - COVID-19 [Unknown]
  - Psoriasis [Unknown]

NARRATIVE: CASE EVENT DATE: 20220610
